FAERS Safety Report 25519599 (Version 1)
Quarter: 2025Q3

REPORT INFORMATION
  Report Type: Spontaneous
  Country: CN (occurrence: CN)
  Receive Date: 20250704
  Receipt Date: 20250704
  Transmission Date: 20251021
  Serious: Yes (Other)
  Sender: Norvium Bioscience
  Company Number: CN-Norvium Bioscience LLC-080352

PATIENT
  Age: 77 Year
  Sex: Male

DRUGS (5)
  1. LINEZOLID [Suspect]
     Active Substance: LINEZOLID
     Indication: Tuberculosis
  2. ISONIAZID [Concomitant]
     Active Substance: ISONIAZID
     Indication: Tuberculosis
  3. RIFAMPIN [Concomitant]
     Active Substance: RIFAMPIN
     Indication: Tuberculosis
  4. ETHAMBUTOL [Concomitant]
     Active Substance: ETHAMBUTOL HYDROCHLORIDE
     Indication: Tuberculosis
  5. MOXIFLOXACIN [Concomitant]
     Active Substance: MOXIFLOXACIN
     Indication: Tuberculosis

REACTIONS (2)
  - Myelosuppression [Recovered/Resolved]
  - Hepatotoxicity [Recovered/Resolved]
